FAERS Safety Report 6979916-8 (Version None)
Quarter: 2010Q3

REPORT INFORMATION
  Report Type: 
  Country: None (occurrence: None)
  Receive Date: 20100914
  Receipt Date: 20100903
  Transmission Date: 20110219
  Serious: Yes (Hospitalization)
  Sender: FDA-Public Use
  Company Number: US-US-EMD SERONO, INC.-236770K09USA

PATIENT
  Sex: Female
  Weight: 117 kg

DRUGS (2)
  1. REBIF [Suspect]
     Indication: MULTIPLE SCLEROSIS
     Route: 058
     Dates: start: 20090507, end: 20100101
  2. REBIF [Suspect]
     Dates: start: 20100101, end: 20100101

REACTIONS (6)
  - DIABETES MELLITUS [None]
  - DIABETIC COMPLICATION [None]
  - HEPATIC ENZYME INCREASED [None]
  - PNEUMONIA [None]
  - PYREXIA [None]
  - SINUSITIS [None]
